FAERS Safety Report 7898564-9 (Version None)
Quarter: 2011Q4

REPORT INFORMATION
  Report Type: 
  Country: None (occurrence: None)
  Receive Date: 20111101
  Receipt Date: 20110302
  Transmission Date: 20120403
  Serious: Yes (Other)
  Sender: FDA-Public Use
  Company Number: 269355USA

PATIENT
  Sex: Female

DRUGS (1)
  1. CLINDAMYCIN HYDROCHLORIDE [Suspect]
     Dosage: 600 MG (150 MG, 4 IN 1 D), ORAL
     Route: 048
     Dates: start: 20110117, end: 20110127

REACTIONS (8)
  - DECREASED APPETITE [None]
  - CLOSTRIDIAL INFECTION [None]
  - MALAISE [None]
  - DIARRHOEA [None]
  - ABDOMINAL PAIN UPPER [None]
  - CHILLS [None]
  - DIARRHOEA HAEMORRHAGIC [None]
  - PYREXIA [None]
